FAERS Safety Report 17108176 (Version 1)
Quarter: 2019Q4

REPORT INFORMATION
  Report Type: Report from Study
  Country: US (occurrence: US)
  Receive Date: 20191203
  Receipt Date: 20191203
  Transmission Date: 20200122
  Serious: Yes (Other)
  Sender: FDA-Public Use
  Company Number: US-OTSUKA-2019_040147

PATIENT
  Age: 6 Decade
  Sex: Male

DRUGS (1)
  1. TOLVAPTAN [Suspect]
     Active Substance: TOLVAPTAN
     Indication: PRODUCT USED FOR UNKNOWN INDICATION
     Dosage: UNK
     Dates: start: 20190812

REACTIONS (3)
  - Dehydration [Not Recovered/Not Resolved]
  - Cardiac failure [Unknown]
  - Renal disorder [Unknown]

NARRATIVE: CASE EVENT DATE: 20191127
